FAERS Safety Report 6681299-8 (Version None)
Quarter: 2010Q2

REPORT INFORMATION
  Report Type: 
  Country: None (occurrence: None)
  Receive Date: 20100414
  Receipt Date: 20100406
  Transmission Date: 20101027
  Serious: Yes (Other)
  Sender: FDA-Public Use
  Company Number: FR-JNJFOC-20100106814

PATIENT
  Age: 11 Year
  Sex: Female
  Weight: 26.7 kg

DRUGS (19)
  1. REMICADE [Suspect]
     Indication: INFLAMMATORY BOWEL DISEASE
     Dosage: 14TH INFUSION (200 MG PLANNED)
     Route: 042
  2. REMICADE [Suspect]
     Route: 042
  3. REMICADE [Suspect]
     Route: 042
  4. REMICADE [Suspect]
     Dosage: 13 INFUSIONS ON UNREPORTED DATES
     Route: 042
  5. REMICADE [Suspect]
     Route: 042
  6. ATARAX [Concomitant]
     Indication: PREMEDICATION
  7. ATARAX [Concomitant]
  8. ATARAX [Concomitant]
  9. ATARAX [Concomitant]
  10. SOLU-MEDROL [Concomitant]
     Indication: PREMEDICATION
  11. SOLU-MEDROL [Concomitant]
  12. DEXCHLORPHENIRAMINE [Concomitant]
     Indication: PREMEDICATION
  13. DEXCHLORPHENIRAMINE [Concomitant]
  14. DEXCHLORPHENIRAMINE [Concomitant]
  15. DEXCHLORPHENIRAMINE [Concomitant]
  16. HYDROCORTISONE [Concomitant]
     Indication: PREMEDICATION
  17. HYDROCORTISONE [Concomitant]
  18. SOLUPRED [Concomitant]
     Indication: PREMEDICATION
  19. SOLUPRED [Concomitant]

REACTIONS (5)
  - ANAPHYLACTOID REACTION [None]
  - DYSPNOEA [None]
  - ERYTHROSIS [None]
  - INFUSION RELATED REACTION [None]
  - OXYGEN SATURATION DECREASED [None]
